FAERS Safety Report 9252700 (Version 1)
Quarter: 2013Q2

REPORT INFORMATION
  Report Type: Spontaneous
  Country: LB (occurrence: LB)
  Receive Date: 20130424
  Receipt Date: 20130424
  Transmission Date: 20140414
  Serious: Yes (Other)
  Sender: FDA-Public Use
  Company Number: LB-GLAXOSMITHKLINE-B0886568A

PATIENT
  Age: 52 Year
  Sex: Female

DRUGS (1)
  1. REVOLADE [Suspect]
     Indication: HYPOPLASTIC ANAEMIA
     Dosage: 50MG PER DAY
     Route: 065
     Dates: start: 20130306

REACTIONS (2)
  - Cardiotoxicity [Not Recovered/Not Resolved]
  - Ejection fraction decreased [Not Recovered/Not Resolved]
